FAERS Safety Report 12113181 (Version 2)
Quarter: 2016Q1

REPORT INFORMATION
  Report Type: Report from Study
  Country: US (occurrence: US)
  Receive Date: 20160225
  Receipt Date: 20160311
  Transmission Date: 20160526
  Serious: Yes (Hospitalization)
  Sender: FDA-Public Use
  Company Number: US-AMGEN-USASL2016020604

PATIENT
  Age: 44 Year
  Sex: Female

DRUGS (1)
  1. ENBREL [Suspect]
     Active Substance: ETANERCEPT
     Indication: RHEUMATOID ARTHRITIS
     Dosage: 50 MG, QWK
     Route: 065
     Dates: start: 20160204

REACTIONS (9)
  - Hyperhidrosis [Unknown]
  - Contusion [Recovering/Resolving]
  - Blood glucose increased [Unknown]
  - Pain in jaw [Unknown]
  - Chest pain [Unknown]
  - Hypertension [Unknown]
  - Back pain [Unknown]
  - Arthritis [Unknown]
  - Dizziness [Unknown]

NARRATIVE: CASE EVENT DATE: 201602
